FAERS Safety Report 20052268 (Version 1)
Quarter: 2021Q4

REPORT INFORMATION
  Report Type: Spontaneous
  Country: US (occurrence: US)
  Receive Date: 20211110
  Receipt Date: 20211110
  Transmission Date: 20220303
  Serious: Yes (Death, Other)
  Sender: FDA-Public Use
  Company Number: US-CADILA HEALTHCARE LIMITED-US-ZYDUS-071211

PATIENT

DRUGS (2)
  1. AMLODIPINE [Suspect]
     Active Substance: AMLODIPINE BESYLATE
     Indication: Product used for unknown indication
     Dosage: UNK
     Route: 065
  2. LORAZEPAM [Suspect]
     Active Substance: LORAZEPAM
     Indication: Product used for unknown indication
     Route: 065

REACTIONS (10)
  - Toxicity to various agents [Fatal]
  - Hypotension [Unknown]
  - Electrocardiogram QRS complex prolonged [Unknown]
  - Respiratory depression [Unknown]
  - Depressed level of consciousness [Unknown]
  - Metabolic acidosis [Unknown]
  - Anion gap [Unknown]
  - Coagulopathy [Unknown]
  - Acute kidney injury [Unknown]
  - Rhabdomyolysis [Unknown]
